FAERS Safety Report 17358696 (Version 1)
Quarter: 2020Q1

REPORT INFORMATION
  Report Type: Spontaneous
  Country: US (occurrence: US)
  Receive Date: 20200201
  Receipt Date: 20200201
  Transmission Date: 20200409
  Serious: No
  Sender: FDA-Public Use
  Company Number: US-TEVA-2020-US-1176595

PATIENT
  Sex: Male

DRUGS (1)
  1. TRAZODONE HYDROCHLORIDE. [Suspect]
     Active Substance: TRAZODONE HYDROCHLORIDE
     Indication: INSOMNIA
     Route: 065
     Dates: start: 20200121

REACTIONS (4)
  - Product use in unapproved indication [Unknown]
  - Rash [Unknown]
  - Eczema [Unknown]
  - Product prescribing error [Unknown]

NARRATIVE: CASE EVENT DATE: 20200122
